FAERS Safety Report 15771883 (Version 1)
Quarter: 2018Q4

REPORT INFORMATION
  Report Type: Report from Study
  Country: JP (occurrence: JP)
  Receive Date: 20181228
  Receipt Date: 20181228
  Transmission Date: 20190205
  Serious: No
  Sender: FDA-Public Use
  Company Number: JP-B.I. PHARMACEUTICALS,INC./RIDGEFIELD-2017-NB-007028

PATIENT
  Age: 48 Year
  Sex: Male
  Weight: 91.1 kg

DRUGS (7)
  1. LANTUS XR [Concomitant]
     Active Substance: INSULIN GLARGINE
     Route: 065
     Dates: start: 20161005, end: 20171206
  2. METFORMIN HYDROCHLORIDE. [Concomitant]
     Active Substance: METFORMIN HYDROCHLORIDE
     Indication: TYPE 2 DIABETES MELLITUS
     Route: 048
     Dates: start: 20170524, end: 20171206
  3. REBAMIPIDE [Concomitant]
     Active Substance: REBAMIPIDE
     Indication: PROPHYLAXIS
     Route: 048
     Dates: start: 20170628, end: 20170711
  4. EMPAGLIFLOZIN [Suspect]
     Active Substance: EMPAGLIFLOZIN
     Indication: TYPE 2 DIABETES MELLITUS
     Route: 048
     Dates: start: 20160907, end: 20171206
  5. LANTUS XR [Concomitant]
     Active Substance: INSULIN GLARGINE
     Indication: TYPE 2 DIABETES MELLITUS
     Route: 065
     Dates: end: 20161004
  6. EXFORGE [Concomitant]
     Active Substance: AMLODIPINE BESYLATE\VALSARTAN
     Indication: PRODUCT USED FOR UNKNOWN INDICATION
     Route: 048
     Dates: end: 20171206
  7. ZAFATEK [Concomitant]
     Active Substance: TRELAGLIPTIN SUCCINATE
     Indication: TYPE 2 DIABETES MELLITUS
     Route: 048
     Dates: end: 20171206

REACTIONS (6)
  - Polycythaemia [Not Recovered/Not Resolved]
  - Musculoskeletal pain [Recovered/Resolved]
  - Urine ketone body present [Not Recovered/Not Resolved]
  - Blood triglycerides increased [Not Recovered/Not Resolved]
  - Back pain [Recovered/Resolved]
  - Diabetes mellitus inadequate control [Not Recovered/Not Resolved]

NARRATIVE: CASE EVENT DATE: 201704
